FAERS Safety Report 20638135 (Version 1)
Quarter: 2022Q1

REPORT INFORMATION
  Report Type: Spontaneous
  Country: AR (occurrence: AR)
  Receive Date: 20220325
  Receipt Date: 20220325
  Transmission Date: 20220423
  Serious: Yes (Hospitalization, Other)
  Sender: FDA-Public Use
  Company Number: AR-PFIZER INC-202200417642

PATIENT
  Age: 73 Year
  Sex: Male

DRUGS (1)
  1. SUTENT [Suspect]
     Active Substance: SUNITINIB MALATE

REACTIONS (4)
  - Brain oedema [Unknown]
  - Monoplegia [Unknown]
  - Loss of consciousness [Unknown]
  - Vomiting [Unknown]
